FAERS Safety Report 18509641 (Version 2)
Quarter: 2020Q4

REPORT INFORMATION
  Report Type: Spontaneous
  Country: US (occurrence: US)
  Receive Date: 20201117
  Receipt Date: 20201215
  Transmission Date: 20210114
  Serious: No
  Sender: FDA-Public Use
  Company Number: US-ASTRAZENECA-2020SF41595

PATIENT
  Age: 22378 Day
  Sex: Female

DRUGS (1)
  1. BYDUREON [Suspect]
     Active Substance: EXENATIDE
     Route: 065

REACTIONS (5)
  - Drug delivery system issue [Unknown]
  - Injection site pain [Unknown]
  - Intentional device misuse [Unknown]
  - Device malfunction [Unknown]
  - Needle issue [Unknown]

NARRATIVE: CASE EVENT DATE: 20201002
